FAERS Safety Report 19698610 (Version 2)
Quarter: 2022Q3

REPORT INFORMATION
  Report Type: Spontaneous
  Country: DE (occurrence: DE)
  Receive Date: 20210813
  Receipt Date: 20220804
  Transmission Date: 20221027
  Serious: No
  Sender: FDA-Public Use
  Company Number: DE-TEVA-2021-DE-1903068

PATIENT
  Sex: Male

DRUGS (30)
  1. PREGABALIN [Suspect]
     Active Substance: PREGABALIN
     Indication: Herpes zoster
     Dosage: UNK UNK, QD
     Route: 065
  2. PREGABALIN [Suspect]
     Active Substance: PREGABALIN
     Indication: Pain
     Dosage: UNK
     Route: 065
     Dates: start: 20201030
  3. PREGABALIN [Suspect]
     Active Substance: PREGABALIN
     Dosage: UNK
     Route: 065
     Dates: start: 20201104
  4. PREGABALIN [Suspect]
     Active Substance: PREGABALIN
     Dosage: 600 MILLIGRAM, QD
     Route: 065
     Dates: start: 20201127
  5. PREGABALIN [Suspect]
     Active Substance: PREGABALIN
     Dosage: 100 MILLIGRAM
     Route: 065
     Dates: start: 20201216
  6. PREGABALIN [Suspect]
     Active Substance: PREGABALIN
     Dosage: 100 MILLIGRAM
     Route: 065
     Dates: start: 20210111
  7. PREGABALIN [Suspect]
     Active Substance: PREGABALIN
     Dosage: 200 MILLIGRAM, QD
     Route: 065
     Dates: start: 20210122
  8. PREGABALIN [Suspect]
     Active Substance: PREGABALIN
     Dosage: 150 MILLIGRAM, QD
     Route: 065
     Dates: start: 20210401
  9. PREGABALIN [Suspect]
     Active Substance: PREGABALIN
     Dosage: 200 MILLIGRAM, EVERY 1 DAY
     Route: 065
     Dates: start: 20210111
  10. PREGABALIN [Suspect]
     Active Substance: PREGABALIN
     Dosage: 175 MILLIGRAM, EVERY 1 DAY
     Route: 065
     Dates: start: 20210409
  11. PREGABALIN [Suspect]
     Active Substance: PREGABALIN
     Dosage: 500 MILLIGRAM, EVERY 1 DAY
     Route: 065
     Dates: start: 20201216
  12. AMITRIPTYLINE [Suspect]
     Active Substance: AMITRIPTYLINE
     Indication: Herpes zoster
     Dosage: 25 MILLIGRAM
     Route: 065
     Dates: start: 20201109
  13. AMITRIPTYLINE [Suspect]
     Active Substance: AMITRIPTYLINE
     Indication: Pain
     Dosage: 1 DOSAGE FORM, QD
     Route: 065
     Dates: start: 20201127
  14. AMITRIPTYLINE [Suspect]
     Active Substance: AMITRIPTYLINE
     Dosage: 10 MILLIGRAM, QD
     Route: 065
     Dates: start: 20201216
  15. BRIVUDINE [Concomitant]
     Active Substance: BRIVUDINE
     Indication: Herpes zoster
     Dosage: UNK
     Route: 065
     Dates: start: 20201013
  16. CYANOCOBALAMIN\FOLATE SODIUM [Concomitant]
     Active Substance: CYANOCOBALAMIN\FOLATE SODIUM
     Indication: Herpes zoster
     Dosage: UNK
     Route: 065
     Dates: start: 20201118
  17. EBENOL [Concomitant]
     Indication: Herpes zoster
     Dosage: UNK
     Route: 065
     Dates: start: 20201013
  18. ANAESTHESULF Lotio [Concomitant]
     Indication: Herpes zoster
     Dosage: UNK
     Route: 065
     Dates: start: 20201030
  19. FLUMETHASONE PIVALATE [Concomitant]
     Active Substance: FLUMETHASONE PIVALATE
     Indication: Herpes zoster
     Dosage: UNK
     Route: 065
     Dates: start: 20201016
  20. Octinidine [Concomitant]
     Indication: Herpes zoster
     Dosage: UNK
     Route: 065
     Dates: start: 20201022
  21. VITAMIN B [Concomitant]
     Active Substance: VITAMIN B
     Indication: Product used for unknown indication
     Dosage: UNK
     Route: 065
     Dates: start: 20201120, end: 20210205
  22. VITAMIN B [Concomitant]
     Active Substance: VITAMIN B
     Dosage: TOTAL
     Route: 065
     Dates: start: 20210205, end: 20210205
  23. VITAMIN B [Concomitant]
     Active Substance: VITAMIN B
     Dosage: TOTAL
     Route: 065
     Dates: start: 20201120, end: 20201120
  24. VITAMIN B [Concomitant]
     Active Substance: VITAMIN B
     Dosage: TOTAL
     Route: 065
     Dates: start: 20201216, end: 20201216
  25. VITAMIN B [Concomitant]
     Active Substance: VITAMIN B
     Dosage: TOTAL
     Route: 065
     Dates: start: 20201127, end: 20201127
  26. VITAMIN B [Concomitant]
     Active Substance: VITAMIN B
     Dosage: TOTAL
     Route: 065
     Dates: start: 20201204, end: 20201204
  27. VITAMIN B [Concomitant]
     Active Substance: VITAMIN B
     Dosage: TOTAL
     Route: 065
     Dates: start: 20201211, end: 20201211
  28. VITAMIN B [Concomitant]
     Active Substance: VITAMIN B
     Dosage: TOTAL
     Route: 065
     Dates: start: 20210111, end: 20210111
  29. VITAMIN B [Concomitant]
     Active Substance: VITAMIN B
     Dosage: TOTAL
     Route: 065
     Dates: start: 20201223, end: 20201223
  30. METAMIZOLE [Concomitant]
     Active Substance: METAMIZOLE
     Indication: Product used for unknown indication
     Dosage: UNK
     Route: 065
     Dates: start: 20201016

REACTIONS (18)
  - Urge incontinence [Unknown]
  - Thirst [Unknown]
  - Dry mouth [Unknown]
  - Memory impairment [Unknown]
  - Paraesthesia [Unknown]
  - Visual impairment [Unknown]
  - Fatigue [Unknown]
  - Breast enlargement [Unknown]
  - Constipation [Unknown]
  - Pain of skin [Recovered/Resolved]
  - Pain [Recovering/Resolving]
  - Therapeutic product effect incomplete [Unknown]
  - Muscle spasms [Unknown]
  - Ageusia [Unknown]
  - Alopecia [Unknown]
  - Back pain [Unknown]
  - Weight increased [Unknown]
  - Disorientation [Unknown]

NARRATIVE: CASE EVENT DATE: 20201109
